FAERS Safety Report 21354072 (Version 4)
Quarter: 2023Q1

REPORT INFORMATION
  Report Type: Report from Study
  Country: CA (occurrence: CA)
  Receive Date: 20220920
  Receipt Date: 20230316
  Transmission Date: 20230417
  Serious: Yes (Other)
  Sender: FDA-Public Use
  Company Number: CA-NOVARTISPH-NVSC2021CA246027

PATIENT
  Age: 69 Year
  Sex: Male

DRUGS (4)
  1. SANDOSTATIN LAR DEPOT [Suspect]
     Active Substance: OCTREOTIDE ACETATE
     Indication: Carcinoid tumour
     Dosage: 30 MG, Q4W
     Route: 030
     Dates: start: 20211004
  2. SANDOSTATIN LAR DEPOT [Suspect]
     Active Substance: OCTREOTIDE ACETATE
  3. SANDOSTATIN LAR DEPOT [Suspect]
     Active Substance: OCTREOTIDE ACETATE
  4. PERINDOPRIL [Concomitant]
     Active Substance: PERINDOPRIL
     Indication: Product used for unknown indication
     Dosage: UNK
     Route: 048

REACTIONS (10)
  - Tourette^s disorder [Unknown]
  - Erectile dysfunction [Unknown]
  - Burns third degree [Unknown]
  - Confusional state [Unknown]
  - Faeces discoloured [Unknown]
  - Incontinence [Unknown]
  - Discomfort [Unknown]
  - Diarrhoea [Unknown]
  - Pain [Unknown]
  - pH urine increased [Unknown]

NARRATIVE: CASE EVENT DATE: 20211001
